FAERS Safety Report 5957366-0 (Version None)
Quarter: 2008Q4

REPORT INFORMATION
  Report Type: 
  Country: None (occurrence: None)
  Receive Date: 20081118
  Receipt Date: 20081104
  Transmission Date: 20090506
  Serious: Yes (Hospitalization)
  Sender: FDA-Public Use
  Company Number: US-GENENTECH-271569

PATIENT

DRUGS (2)
  1. BEVACIZUMAB [Suspect]
     Indication: CERVIX CARCINOMA
     Dosage: 10 MG/KG, Q14D
     Route: 042
     Dates: start: 20080826
  2. CISPLATIN [Suspect]
     Indication: CERVIX CARCINOMA
     Dosage: 40 MG/M2, 1/WEEK
     Route: 042
     Dates: start: 20080826

REACTIONS (1)
  - PYREXIA [None]
